FAERS Safety Report 24670342 (Version 2)
Quarter: 2024Q4

REPORT INFORMATION
  Report Type: Spontaneous
  Country: TW (occurrence: TW)
  Receive Date: 20241127
  Receipt Date: 20241204
  Transmission Date: 20250115
  Serious: Yes (Other)
  Sender: MERCK
  Company Number: TW-009507513-2411TWN010179

PATIENT
  Age: 44 Year
  Sex: Female

DRUGS (1)
  1. LETERMOVIR [Suspect]
     Active Substance: LETERMOVIR
     Indication: Antiviral prophylaxis
     Route: 048

REACTIONS (2)
  - Cytomegalovirus chorioretinitis [Unknown]
  - Acute myeloid leukaemia recurrent [Recovered/Resolved]
